FAERS Safety Report 8149677 (Version 3)
Quarter: 2012Q4

REPORT INFORMATION
  Report Type: 
  Country: US (occurrence: US)
  Receive Date: 20110922
  Receipt Date: 20121112
  Transmission Date: 20130627
  Serious: No
  Sender: FDA-Public Use
  Company Number: US-ASTRAZENECA-2011SE44078

PATIENT
  Age: 32 Year
  Sex: Male

DRUGS (10)
  1. SEROQUEL [Suspect]
     Indication: SLEEP DISORDER
     Route: 048
     Dates: start: 2009
  2. SEROQUEL [Suspect]
     Indication: SLEEP DISORDER
     Route: 048
  3. ZOLOFT [Concomitant]
  4. BUSPAR [Concomitant]
  5. LISINOPRIL-HCTZ [Concomitant]
  6. METOPROLOL [Concomitant]
  7. ATENOLOL [Concomitant]
  8. KLONOPIN [Concomitant]
  9. DILTIAZEM [Concomitant]
  10. ZITHROMAX [Concomitant]

REACTIONS (8)
  - Oropharyngeal pain [Unknown]
  - Sinusitis [Unknown]
  - Anxiety [Unknown]
  - Panic disorder [Unknown]
  - Insomnia [Unknown]
  - Depression [Unknown]
  - Insomnia [Unknown]
  - Drug dose omission [Unknown]
